FAERS Safety Report 4855680-3 (Version None)
Quarter: 2005Q4

REPORT INFORMATION
  Report Type: 
  Country: None (occurrence: None)
  Receive Date: 20051216
  Receipt Date: 20050419
  Transmission Date: 20060501
  Serious: Yes (Other)
  Sender: FDA-Public Use
  Company Number: PHNR2005AU00792

PATIENT
  Age: 84 Year
  Sex: Female

DRUGS (6)
  1. AREDIA [Suspect]
     Indication: OSTEITIS DEFORMANS
     Dosage: 60MG  MONTHLY
     Route: 042
  2. DILTIAZEM HCL [Concomitant]
  3. SIMVASTATIN [Concomitant]
  4. FERROUS SULFATE TAB [Concomitant]
  5. ASPIRIN [Concomitant]
  6. BENDROFLUAZIDE [Concomitant]

REACTIONS (6)
  - BONE DEBRIDEMENT [None]
  - DENTAL OPERATION [None]
  - FISTULA [None]
  - IMPAIRED HEALING [None]
  - OSTEONECROSIS [None]
  - TOOTH EXTRACTION [None]
